FAERS Safety Report 6937363-9 (Version None)
Quarter: 2010Q3

REPORT INFORMATION
  Report Type: 
  Country: None (occurrence: None)
  Receive Date: 20100823
  Receipt Date: 20100813
  Transmission Date: 20110219
  Serious: Yes (Other)
  Sender: FDA-Public Use
  Company Number: ES-AMGEN-QUU431959

PATIENT
  Age: 63 Year
  Sex: Female

DRUGS (6)
  1. ENBREL [Suspect]
     Indication: RHEUMATOID ARTHRITIS
     Dosage: ENBREL 25 MG, DOSING UNKNOWN
     Route: 065
     Dates: start: 20100101
  2. DAFLON [Concomitant]
     Dosage: UNKNOWN
     Route: 065
  3. SIRDALUD [Concomitant]
     Dosage: UNKNOWN
     Route: 065
  4. OMEPRAZOLE [Concomitant]
     Dosage: UNKNOWN
     Route: 065
  5. ARAVA [Concomitant]
     Dosage: UNKNOWN
     Route: 065
  6. CELEBREX [Concomitant]
     Dosage: UNKNOWN
     Route: 065

REACTIONS (1)
  - THYROIDITIS [None]
